FAERS Safety Report 20322316 (Version 1)
Quarter: 2022Q1

REPORT INFORMATION
  Report Type: Spontaneous
  Country: US (occurrence: US)
  Receive Date: 20220111
  Receipt Date: 20220111
  Transmission Date: 20220423
  Serious: No
  Sender: FDA-Public Use
  Company Number: US-ABBVIE-21K-163-4137286-00

PATIENT
  Sex: Male

DRUGS (2)
  1. DUOPA [Suspect]
     Active Substance: CARBIDOPA\LEVODOPA
     Indication: Parkinson^s disease
     Dosage: STRENGTH (CMP): 4.63 MG/ML 20 MG/ML
     Route: 050
     Dates: start: 20181108
  2. DUOPA [Suspect]
     Active Substance: CARBIDOPA\LEVODOPA

REACTIONS (9)
  - Musculoskeletal disorder [Unknown]
  - Mental impairment [Unknown]
  - Mobility decreased [Unknown]
  - Device issue [Unknown]
  - Speech disorder [Unknown]
  - Device issue [Unknown]
  - Device alarm issue [Unknown]
  - Device programming error [Unknown]
  - Device difficult to use [Unknown]
